FAERS Safety Report 4559075-1 (Version None)
Quarter: 2005Q1

REPORT INFORMATION
  Report Type: 
  Country: None (occurrence: None)
  Receive Date: 20050119
  Receipt Date: 20050107
  Transmission Date: 20050727
  Serious: Yes (Hospitalization)
  Sender: FDA-Public Use
  Company Number: 001-0981-998209

PATIENT
  Age: 70 Year
  Sex: Female
  Weight: 72.1219 kg

DRUGS (8)
  1. ATORVASTATIN (ATORVASTATIN) [Suspect]
     Indication: CORONARY ARTERY DISEASE
     Dosage: SEE IMAGE
     Route: 048
     Dates: start: 19990723, end: 19990916
  2. ATORVASTATIN (ATORVASTATIN) [Suspect]
     Indication: CORONARY ARTERY DISEASE
     Dosage: SEE IMAGE
     Route: 048
     Dates: start: 19990917
  3. CAPTOPRIL [Concomitant]
  4. BECLOMETHASONE DIPROPIONATE [Concomitant]
  5. METHYLPREDNISOLONE [Concomitant]
  6. SALBUTAMOL (SALBUTAMOL) [Concomitant]
  7. PRAVASTATIN [Concomitant]
  8. ASPIRIN [Concomitant]

REACTIONS (3)
  - CHOLELITHIASIS [None]
  - PANCREATITIS [None]
  - TREATMENT NONCOMPLIANCE [None]
